FAERS Safety Report 17875249 (Version 1)
Quarter: 2020Q2

REPORT INFORMATION
  Report Type: Spontaneous
  Country: JP (occurrence: JP)
  Receive Date: 20200609
  Receipt Date: 20200609
  Transmission Date: 20200714
  Serious: Yes (Other)
  Sender: FDA-Public Use
  Company Number: JP-BAYER-2017-220377

PATIENT
  Age: 62 Year
  Sex: Male

DRUGS (4)
  1. XOFIGO [Suspect]
     Active Substance: RADIUM RA-223 DICHLORIDE
     Dosage: 1 VIAL, ONCE
     Route: 042
     Dates: start: 20170706, end: 20170706
  2. XOFIGO [Suspect]
     Active Substance: RADIUM RA-223 DICHLORIDE
     Dosage: 1 VIAL, ONCE
     Route: 042
  3. XOFIGO [Suspect]
     Active Substance: RADIUM RA-223 DICHLORIDE
     Dosage: 1 VIAL, ONCE
     Route: 042
     Dates: start: 20171013, end: 20171013
  4. XOFIGO [Suspect]
     Active Substance: RADIUM RA-223 DICHLORIDE
     Dosage: 1 VIAL, ONCE
     Route: 042

REACTIONS (1)
  - Hormone-refractory prostate cancer [Unknown]

NARRATIVE: CASE EVENT DATE: 20171031
